FAERS Safety Report 17870442 (Version 2)
Quarter: 2020Q3

REPORT INFORMATION
  Report Type: Spontaneous
  Country: BR (occurrence: BR)
  Receive Date: 20200608
  Receipt Date: 20200713
  Transmission Date: 20201103
  Serious: No
  Sender: FDA-Public Use
  Company Number: BR-JNJFOC-20200601333

PATIENT
  Sex: Male

DRUGS (1)
  1. DUROGESIC D?TRANS [Suspect]
     Active Substance: FENTANYL
     Indication: PAIN
     Dosage: STRENGTH: 12.00 MCG/HR
     Route: 062

REACTIONS (1)
  - Product packaging quantity issue [Unknown]
